FAERS Safety Report 9891222 (Version 1)
Quarter: 2014Q1

REPORT INFORMATION
  Report Type: Spontaneous
  Country: FR (occurrence: FR)
  Receive Date: 20140212
  Receipt Date: 20140212
  Transmission Date: 20141002
  Serious: Yes (Death, Life-Threatening, Hospitalization)
  Sender: FDA-Public Use
  Company Number: FR-JNJFOC-20140205954

PATIENT
  Age: 69 Year
  Sex: Female

DRUGS (5)
  1. XARELTO [Suspect]
     Indication: PRODUCT USED FOR UNKNOWN INDICATION
     Route: 048
     Dates: start: 201306, end: 20131219
  2. PERINDOPRIL [Concomitant]
     Route: 048
  3. TAHOR [Concomitant]
     Route: 048
  4. STAGID [Concomitant]
     Route: 048
  5. SOTALEX [Concomitant]
     Route: 048

REACTIONS (3)
  - Haemoptysis [Fatal]
  - Haemorrhagic anaemia [Fatal]
  - Cardio-respiratory arrest [Fatal]
